FAERS Safety Report 9649301 (Version 2)
Quarter: 2013Q4

REPORT INFORMATION
  Report Type: Spontaneous
  Country: JP (occurrence: JP)
  Receive Date: 20131028
  Receipt Date: 20131206
  Transmission Date: 20140711
  Serious: No
  Sender: FDA-Public Use
  Company Number: PHHY2013JP119809

PATIENT
  Age: 74 Year
  Sex: Female

DRUGS (5)
  1. TASIGNA [Suspect]
     Indication: CHRONIC MYELOID LEUKAEMIA
     Dosage: 600 MG, DAILY
     Route: 048
     Dates: start: 20131001
  2. PARIET [Concomitant]
     Dosage: UNK UKN, UNK
     Route: 048
  3. FAMOTIDINE [Concomitant]
     Dosage: UNK UKN, UNK
     Route: 048
  4. LIVALO [Concomitant]
     Dosage: UNK UKN, UNK
     Route: 048
  5. EVISTA [Concomitant]
     Dosage: UNK UKN, UNK
     Route: 048

REACTIONS (10)
  - Rash [Recovered/Resolved]
  - Rash generalised [Recovered/Resolved]
  - Pruritus [Recovered/Resolved]
  - Erythema [Recovered/Resolved]
  - Paraesthesia [Recovered/Resolved]
  - Somnolence [Unknown]
  - Malaise [Unknown]
  - Asthenia [Unknown]
  - Inappropriate schedule of drug administration [Unknown]
  - Contusion [Unknown]
